FAERS Safety Report 13344957 (Version 1)
Quarter: 2017Q1

REPORT INFORMATION
  Report Type: Spontaneous
  Country: US (occurrence: US)
  Receive Date: 20170316
  Receipt Date: 20170316
  Transmission Date: 20170428
  Serious: Yes (Other)
  Sender: FDA-Public Use
  Company Number: None

PATIENT
  Age: 63 Year
  Sex: Female
  Weight: 67.5 kg

DRUGS (8)
  1. TIZANIDINE. [Concomitant]
     Active Substance: TIZANIDINE
  2. ONDANSETRON [Concomitant]
     Active Substance: ONDANSETRON
  3. BYSTOLIC [Suspect]
     Active Substance: NEBIVOLOL HYDROCHLORIDE
     Indication: BLOOD PRESSURE INCREASED
     Dosage: ?          QUANTITY:30 TABLET(S);?
     Route: 048
     Dates: start: 20160615, end: 20170314
  4. SYNTHROID [Concomitant]
     Active Substance: LEVOTHYROXINE SODIUM
  5. BYSTOLIC [Suspect]
     Active Substance: NEBIVOLOL HYDROCHLORIDE
     Indication: CONCUSSION
     Dosage: ?          QUANTITY:30 TABLET(S);?
     Route: 048
     Dates: start: 20160615, end: 20170314
  6. LORAZEPAM. [Concomitant]
     Active Substance: LORAZEPAM
  7. BYSTOLIC [Suspect]
     Active Substance: NEBIVOLOL HYDROCHLORIDE
     Indication: HEADACHE
     Dosage: ?          QUANTITY:30 TABLET(S);?
     Route: 048
     Dates: start: 20160615, end: 20170314
  8. ESZOPICLONE. [Concomitant]
     Active Substance: ESZOPICLONE

REACTIONS (7)
  - Pruritus [None]
  - Chest discomfort [None]
  - Urticaria [None]
  - Lip swelling [None]
  - Swelling [None]
  - Throat tightness [None]
  - Throat irritation [None]

NARRATIVE: CASE EVENT DATE: 20170314
